FAERS Safety Report 14355314 (Version 1)
Quarter: 2018Q1

REPORT INFORMATION
  Report Type: Spontaneous
  Country: US (occurrence: US)
  Receive Date: 20180104
  Receipt Date: 20180104
  Transmission Date: 20180509
  Serious: Yes (Other)
  Sender: FDA-Public Use
  Company Number: None

PATIENT
  Age: 58 Year
  Sex: Female
  Weight: 105.75 kg

DRUGS (3)
  1. CLARITIN [Suspect]
     Active Substance: LORATADINE
     Indication: EYE PRURITUS
     Dosage: ?          QUANTITY:1 TABLET(S);OTHER FREQUENCY:24 HRS;?
     Route: 048
     Dates: start: 20180104, end: 20180104
  2. CLARITIN [Suspect]
     Active Substance: LORATADINE
     Indication: SNEEZING
     Dosage: ?          QUANTITY:1 TABLET(S);OTHER FREQUENCY:24 HRS;?
     Route: 048
     Dates: start: 20180104, end: 20180104
  3. CLARITIN [Suspect]
     Active Substance: LORATADINE
     Indication: RHINORRHOEA
     Dosage: ?          QUANTITY:1 TABLET(S);OTHER FREQUENCY:24 HRS;?
     Route: 048
     Dates: start: 20180104, end: 20180104

REACTIONS (3)
  - Dizziness [None]
  - Headache [None]
  - Abdominal discomfort [None]

NARRATIVE: CASE EVENT DATE: 20180104
